FAERS Safety Report 4488697-1 (Version None)
Quarter: 2004Q4

REPORT INFORMATION
  Report Type: 
  Country: None (occurrence: None)
  Receive Date: 20041025
  Receipt Date: 20041007
  Transmission Date: 20050328
  Serious: Yes (Death)
  Sender: FDA-Public Use
  Company Number: 200412237GDS

PATIENT
  Age: 51 Year
  Sex: Male
  Weight: 80 kg

DRUGS (1)
  1. AVELOX [Suspect]
     Indication: PNEUMONIA
     Dosage: 400 MG, TOTAL DAILY, INTRAVENOUS
     Route: 042

REACTIONS (7)
  - ALANINE AMINOTRANSFERASE INCREASED [None]
  - ASPARTATE AMINOTRANSFERASE INCREASED [None]
  - CARDIAC ARREST [None]
  - GAMMA-GLUTAMYLTRANSFERASE INCREASED [None]
  - VENTRICULAR EXTRASYSTOLES [None]
  - VENTRICULAR FIBRILLATION [None]
  - VENTRICULAR FLUTTER [None]
